FAERS Safety Report 7944871-0 (Version None)
Quarter: 2011Q4

REPORT INFORMATION
  Report Type: 
  Country: None (occurrence: None)
  Receive Date: 20111129
  Receipt Date: 20110727
  Transmission Date: 20120403
  Serious: No
  Sender: FDA-Public Use
  Company Number: US-MYLANLABS-2011S1015671

PATIENT
  Age: 59 Year
  Sex: Female

DRUGS (3)
  1. CLONIDINE HYDROCHLORIDE [Suspect]
     Indication: BLOOD PRESSURE INCREASED
     Dosage: WHEN BP IS }140/90 MMHG
     Route: 048
     Dates: start: 20110720, end: 20110724
  2. LEVOTHYROXINE SODIUM [Concomitant]
     Indication: THYROIDECTOMY
     Route: 048
  3. AMLODIPINE BESYLATE [Suspect]
     Indication: BLOOD PRESSURE INCREASED
     Route: 048
     Dates: start: 20110702, end: 20110717

REACTIONS (2)
  - PRURITUS [None]
  - ERYTHEMA [None]
